FAERS Safety Report 8885871 (Version 1)
Quarter: 2012Q4

REPORT INFORMATION
  Report Type: Report from Study
  Country: TW (occurrence: TW)
  Receive Date: 20121105
  Receipt Date: 20121105
  Transmission Date: 20130627
  Serious: Yes (Death, Other)
  Sender: FDA-Public Use
  Company Number: PHHO2010TW11397

PATIENT
  Age: 85 Year
  Sex: Male

DRUGS (1)
  1. ALISKIREN [Suspect]
     Indication: CARDIAC FAILURE ACUTE
     Route: 048
     Dates: start: 20100105, end: 20100615

REACTIONS (3)
  - Renal impairment [Not Recovered/Not Resolved]
  - Cardiac failure [Fatal]
  - Disease progression [Fatal]
